FAERS Safety Report 14532209 (Version 2)
Quarter: 2019Q3

REPORT INFORMATION
  Report Type: Report from Study
  Country: DE (occurrence: DE)
  Receive Date: 20180214
  Receipt Date: 20190815
  Transmission Date: 20191004
  Serious: Yes (Other)
  Sender: FDA-Public Use
  Company Number: DE-BRISTOL-MYERS SQUIBB COMPANY-BMS-2018-011796

PATIENT
  Age: 82 Year
  Sex: Male
  Weight: 100 kg

DRUGS (1)
  1. APIXABAN [Suspect]
     Active Substance: APIXABAN
     Indication: EMBOLISM VENOUS
     Dosage: 2.5 MILLIGRAM, BID
     Route: 048
     Dates: start: 20160503

REACTIONS (3)
  - Presyncope [Unknown]
  - Intracardiac thrombus [Unknown]
  - Vertebral artery occlusion [Unknown]

NARRATIVE: CASE EVENT DATE: 20171116
